FAERS Safety Report 5039094-1 (Version None)
Quarter: 2006Q2

REPORT INFORMATION
  Report Type: 
  Country: None (occurrence: None)
  Receive Date: 20060629
  Receipt Date: 20060419
  Transmission Date: 20061013
  Serious: Yes (Death, Disabling)
  Sender: FDA-Public Use
  Company Number: US-MERCK-0605USA00545

PATIENT
  Age: 89 Year
  Sex: Female
  Weight: 55 kg

DRUGS (2)
  1. FOSAMAX [Suspect]
     Indication: OSTEOPOROSIS
     Route: 048
     Dates: start: 19960711, end: 20030217
  2. ZOMETA [Concomitant]
     Route: 065
     Dates: start: 20030801

REACTIONS (2)
  - LUNG NEOPLASM MALIGNANT [None]
  - OSTEONECROSIS [None]
